FAERS Safety Report 10550190 (Version 2)
Quarter: 2014Q4

REPORT INFORMATION
  Report Type: Report from Study
  Country: DE (occurrence: FR)
  Receive Date: 20141028
  Receipt Date: 20141031
  Transmission Date: 20150529
  Serious: Yes (Death)
  Sender: FDA-Public Use
  Company Number: DE-ACTELION-A-US2014-107370

PATIENT

DRUGS (1)
  1. VENTAVIS [Suspect]
     Active Substance: ILOPROST
     Indication: PULMONARY HYPERTENSION
     Route: 055

REACTIONS (1)
  - Pulmonary hypertension [Fatal]
